FAERS Safety Report 25681992 (Version 1)
Quarter: 2025Q3

REPORT INFORMATION
  Report Type: Spontaneous
  Country: CA (occurrence: CA)
  Receive Date: 20250814
  Receipt Date: 20250814
  Transmission Date: 20251021
  Serious: Yes (Other)
  Sender: NOVO NORDISK
  Company Number: None

PATIENT
  Age: 31 Year
  Sex: Male

DRUGS (2)
  1. SEMAGLUTIDE [Suspect]
     Active Substance: SEMAGLUTIDE
     Indication: Product used for unknown indication
  2. DAYTRANA [Suspect]
     Active Substance: METHYLPHENIDATE
     Indication: Attention deficit hyperactivity disorder

REACTIONS (7)
  - Choking sensation [Unknown]
  - Emotional disorder [Unknown]
  - Eye pain [Unknown]
  - Facial pain [Unknown]
  - Intentional self-injury [Unknown]
  - Oropharyngeal pain [Unknown]
  - Panic disorder [Unknown]
